FAERS Safety Report 4626404-X (Version None)
Quarter: 2005Q1

REPORT INFORMATION
  Report Type: 
  Country: None (occurrence: None)
  Receive Date: 20050330
  Receipt Date: 20050322
  Transmission Date: 20050727
  Serious: Yes (Death)
  Sender: FDA-Public Use
  Company Number: 163-20785-05030079

PATIENT
  Age: 71 Year
  Sex: Female

DRUGS (1)
  1. THALOMID [Suspect]
     Indication: MULTIPLE MYELOMA
     Dosage: 200 MG, QD, ORAL
     Route: 048
     Dates: start: 20041001, end: 20050217

REACTIONS (5)
  - DISEASE PROGRESSION [None]
  - IMMUNOSUPPRESSION [None]
  - MULTIPLE MYELOMA [None]
  - NECROTISING FASCIITIS [None]
  - SEPSIS [None]
